FAERS Safety Report 7320743-X (Version None)
Quarter: 2011Q1

REPORT INFORMATION
  Report Type: 
  Country: None (occurrence: None)
  Receive Date: 20110223
  Receipt Date: 20110223
  Transmission Date: 20110831
  Serious: Yes (Hospitalization)
  Sender: FDA-Public Use
  Company Number: None

PATIENT
  Age: 68 Year
  Sex: Male
  Weight: 106 kg

DRUGS (5)
  1. LISINOPRIL AND HYDROCHLOROTHIAZIDE [Suspect]
     Indication: HYPERTENSION
     Dosage: 10/12.5 DAILY PO
     Route: 048
  2. GLIPIZIDE [Concomitant]
  3. ASPIRIN [Concomitant]
  4. METFORMIN [Concomitant]
  5. SIMVASTATIN [Concomitant]

REACTIONS (1)
  - ANGIOEDEMA [None]
